FAERS Safety Report 12916843 (Version 1)
Quarter: 2016Q4

REPORT INFORMATION
  Report Type: Spontaneous
  Country: US (occurrence: US)
  Receive Date: 20161107
  Receipt Date: 20161107
  Transmission Date: 20170207
  Serious: No
  Sender: FDA-Public Use
  Company Number: US-JAZZ-2016-US-017205

PATIENT
  Sex: Female

DRUGS (10)
  1. ZOFRAN [Concomitant]
     Active Substance: ONDANSETRON HYDROCHLORIDE
  2. TIZANIDINE HCL [Concomitant]
     Active Substance: TIZANIDINE HYDROCHLORIDE
  3. XYREM [Suspect]
     Active Substance: SODIUM OXYBATE
     Dosage: 4 G, FIRST DOSE
     Route: 048
     Dates: start: 201510
  4. PERCOCET [Concomitant]
     Active Substance: ACETAMINOPHEN\OXYCODONE HYDROCHLORIDE
  5. XYREM [Suspect]
     Active Substance: SODIUM OXYBATE
     Dosage: 3.75 G, SECOND DOSE
     Route: 048
     Dates: start: 201510
  6. VITAMIN C [Concomitant]
     Active Substance: ASCORBIC ACID
  7. TRAMADOL HCL [Concomitant]
     Active Substance: TRAMADOL HYDROCHLORIDE
  8. XYREM [Suspect]
     Active Substance: SODIUM OXYBATE
     Indication: CATAPLEXY
     Dosage: DOSE ADJUSTMENTS
     Route: 048
     Dates: start: 201404, end: 201510
  9. NUVIGIL [Concomitant]
     Active Substance: ARMODAFINIL
  10. XYREM [Suspect]
     Active Substance: SODIUM OXYBATE
     Indication: NARCOLEPSY
     Dosage: 2.25 G, BID
     Route: 048
     Dates: start: 201403, end: 201404

REACTIONS (2)
  - Pyrexia [Unknown]
  - Drug ineffective [Unknown]
